FAERS Safety Report 5742268-5 (Version None)
Quarter: 2008Q2

REPORT INFORMATION
  Report Type: 
  Country: None (occurrence: None)
  Receive Date: 20080519
  Receipt Date: 20080508
  Transmission Date: 20081010
  Serious: Yes (Hospitalization)
  Sender: FDA-Public Use
  Company Number: PHHY2008US01793

PATIENT
  Age: 59 Year
  Sex: Female
  Weight: 65.3 kg

DRUGS (20)
  1. MUCOMYST [Concomitant]
  2. NIFEDIPINE [Concomitant]
     Dosage: 60 MG, UNK
  3. NOVOLOG [Concomitant]
  4. NIASPAN [Concomitant]
  5. TRICOR [Concomitant]
  6. SODIUM CHLORIDE [Concomitant]
     Route: 042
  7. MYFORTIC [Suspect]
     Indication: RENAL TRANSPLANT
     Dosage: 1440 MG/DAILY
     Route: 048
     Dates: start: 20070615
  8. PROGRAF [Concomitant]
     Dosage: 3 MG Q.A.M AND 4 MG Q.P.M
     Route: 048
  9. PREDNISONE [Concomitant]
     Dosage: 5 MG / DAY
  10. PLAVIX [Concomitant]
  11. ASPIRIN [Concomitant]
  12. PROTONIX [Concomitant]
  13. ADALAT CC [Concomitant]
     Indication: BLOOD PRESSURE
     Dosage: 60 MG/DAY
  14. NORVASC [Concomitant]
     Dosage: 5 MG /DAY
  15. DIOVAN HCT [Concomitant]
  16. IMDUR [Concomitant]
     Dosage: 60 MG/ DAY
  17. TOPROL-XL [Concomitant]
     Dosage: 100 MG /DAY
  18. FUROSEMIDE [Concomitant]
     Dosage: 40 MG /DAY
  19. LANTUS [Concomitant]
  20. LIPITOR [Concomitant]
     Dosage: 80 MG/DAY

REACTIONS (17)
  - ANGINA UNSTABLE [None]
  - ARTERIOSCLEROSIS [None]
  - BRADYCARDIA [None]
  - BRONCHITIS [None]
  - BRONCHOPNEUMONIA [None]
  - CARDIAC FAILURE CONGESTIVE [None]
  - CATHETERISATION CARDIAC [None]
  - CHEST PAIN [None]
  - DYSPNOEA [None]
  - HYPERKALAEMIA [None]
  - HYPOTENSION [None]
  - LUNG INFILTRATION [None]
  - OXYGEN SATURATION DECREASED [None]
  - PERCUTANEOUS CORONARY INTERVENTION [None]
  - PLEURAL EFFUSION [None]
  - THROMBECTOMY [None]
  - WHITE BLOOD CELL COUNT INCREASED [None]
